FAERS Safety Report 21964622 (Version 1)
Quarter: 2023Q1

REPORT INFORMATION
  Report Type: Spontaneous
  Country: US (occurrence: US)
  Receive Date: 20230207
  Receipt Date: 20230207
  Transmission Date: 20230417
  Serious: No
  Sender: FDA-Public Use
  Company Number: US-PURDUE PHARMA-USA-2022-0296380

PATIENT
  Sex: Female

DRUGS (4)
  1. BUTRANS [Suspect]
     Active Substance: BUPRENORPHINE
     Indication: Burning sensation
     Dosage: 10 MICROGRAM EVERY 7 DAYS
     Route: 062
     Dates: start: 202207
  2. BUTRANS [Suspect]
     Active Substance: BUPRENORPHINE
     Indication: Pain
  3. BUTRANS [Suspect]
     Active Substance: BUPRENORPHINE
     Indication: Neck pain
  4. PROPOFOL [Suspect]
     Active Substance: PROPOFOL
     Indication: Product used for unknown indication
     Dosage: UNK
     Route: 065

REACTIONS (5)
  - Feeling jittery [Unknown]
  - Agitation [Unknown]
  - Pain in extremity [Unknown]
  - Product adhesion issue [Unknown]
  - Nightmare [Unknown]
